FAERS Safety Report 13289952 (Version 1)
Quarter: 2017Q1

REPORT INFORMATION
  Report Type: Spontaneous
  Country: FR (occurrence: FR)
  Receive Date: 20170302
  Receipt Date: 20170302
  Transmission Date: 20170428
  Serious: Yes (Life-Threatening, Hospitalization)
  Sender: FDA-Public Use
  Company Number: FR-GLAXOSMITHKLINE-FR2017GSK026607

PATIENT
  Age: 67 Year
  Sex: Male

DRUGS (12)
  1. ZELITREX [Suspect]
     Active Substance: VALACYCLOVIR HYDROCHLORIDE
     Indication: HERPES ZOSTER
     Dosage: 1 G, TID
     Route: 048
     Dates: start: 20170203, end: 20170207
  2. AMOXICILLINE [Concomitant]
     Active Substance: AMOXICILLIN
     Indication: HERPES ZOSTER
     Dosage: 1 G, TID
     Dates: start: 20170205
  3. BEFIZAL [Concomitant]
     Active Substance: BEZAFIBRATE
     Dosage: 400 MG, QD
  4. SEROPLEX [Concomitant]
     Active Substance: ESCITALOPRAM OXALATE
     Dosage: 20 MG, QD
  5. TRIATEC [Concomitant]
     Active Substance: RAMIPRIL
     Dosage: 10 MG, QD
  6. EBIXA [Concomitant]
     Active Substance: MEMANTINE HYDROCHLORIDE
     Dosage: 20 MG, QD
  7. TOCO [Concomitant]
     Active Substance: UNSPECIFIED INGREDIENT
     Dosage: 500 MG, BID
  8. TRIDESONIT [Concomitant]
     Active Substance: DESONIDE
     Dosage: UNK
     Route: 061
     Dates: start: 201702
  9. ACICLOVIR [Suspect]
     Active Substance: ACYCLOVIR
     Indication: HERPES ZOSTER
     Dosage: 15 MG/KG, QD
     Route: 042
     Dates: start: 20170207, end: 20170209
  10. METFORMINE [Concomitant]
     Active Substance: METFORMIN HYDROCHLORIDE
     Dosage: 1000 MG, QD
  11. LERCANIDIPINE [Concomitant]
     Active Substance: LERCANIDIPINE
     Dosage: 20 MG, QD
  12. ATARAX [Concomitant]
     Active Substance: HYDROXYZINE HYDROCHLORIDE
     Dosage: 25 MG, QD

REACTIONS (3)
  - Confusional state [Recovering/Resolving]
  - Aphasia [Recovering/Resolving]
  - Dyskinesia [Recovering/Resolving]

NARRATIVE: CASE EVENT DATE: 20170203
